FAERS Safety Report 5512489-5 (Version None)
Quarter: 2007Q4

REPORT INFORMATION
  Report Type: 
  Country: None (occurrence: None)
  Receive Date: 20071112
  Receipt Date: 20070730
  Transmission Date: 20080405
  Serious: No
  Sender: FDA-Public Use
  Company Number: A0652185A

PATIENT
  Age: 72 Year
  Sex: Male

DRUGS (3)
  1. AVANDAMET [Suspect]
     Route: 048
     Dates: end: 20070521
  2. FLOMAX [Concomitant]
  3. AVODART [Concomitant]

REACTIONS (4)
  - ADVERSE REACTION [None]
  - CHOKING SENSATION [None]
  - COUGH [None]
  - PAIN [None]
